FAERS Safety Report 10425799 (Version 1)
Quarter: 2014Q3

REPORT INFORMATION
  Report Type: Spontaneous
  Country: US (occurrence: US)
  Receive Date: 20140903
  Receipt Date: 20140903
  Transmission Date: 20150326
  Serious: Yes (Death, Hospitalization)
  Sender: FDA-Public Use
  Company Number: US-B.I. PHARMACEUTICALS,INC./RIDGEFIELD-2014-BI-40026BP

PATIENT
  Age: 78 Year
  Sex: Female

DRUGS (1)
  1. PRADAXA [Suspect]
     Active Substance: DABIGATRAN ETEXILATE MESYLATE
     Indication: ATRIAL FIBRILLATION
     Route: 065
     Dates: end: 20120530

REACTIONS (6)
  - Gastrointestinal haemorrhage [Unknown]
  - Renal failure acute [Unknown]
  - Cardiomyopathy [Fatal]
  - Pulmonary oedema [Unknown]
  - Acute respiratory failure [Unknown]
  - Generalised oedema [Unknown]

NARRATIVE: CASE EVENT DATE: 20120530
